FAERS Safety Report 21934464 (Version 1)
Quarter: 2023Q1

REPORT INFORMATION
  Report Type: Other
  Country: FR (occurrence: FR)
  Receive Date: 20230201
  Receipt Date: 20230201
  Transmission Date: 20230418
  Serious: Yes (Hospitalization)
  Sender: FDA-Public Use
  Company Number: None

PATIENT

DRUGS (5)
  1. VALACYCLOVIR HYDROCHLORIDE [Suspect]
     Active Substance: VALACYCLOVIR HYDROCHLORIDE
     Indication: Meningitis aseptic
     Dosage: 1 DOSAGE FORM
     Route: 048
     Dates: start: 20221223, end: 20221226
  2. AMOXICILLIN SODIUM [Suspect]
     Active Substance: AMOXICILLIN SODIUM
     Indication: Meningitis aseptic
     Dosage: 1 DOSAGE FORM
     Route: 042
     Dates: start: 20221223, end: 20221226
  3. AMOXICILLIN\CLAVULANATE POTASSIUM [Suspect]
     Active Substance: AMOXICILLIN\CLAVULANATE POTASSIUM
     Indication: Lung disorder
     Dosage: 1 DOSAGE FORM
     Route: 042
     Dates: start: 20221218, end: 20221223
  4. IOMERON [Suspect]
     Active Substance: IOMEPROL
     Indication: Computerised tomogram
     Dosage: 1 DOSAGE FORM
     Route: 042
     Dates: start: 20221218, end: 20221218
  5. IOBITRIDOL [Suspect]
     Active Substance: IOBITRIDOL
     Indication: Computerised tomogram
     Dosage: 1 DOSAGE FORM
     Route: 042
     Dates: start: 20221222, end: 20221222

REACTIONS (1)
  - Acute generalised exanthematous pustulosis [Recovering/Resolving]

NARRATIVE: CASE EVENT DATE: 20221223
